FAERS Safety Report 9552311 (Version 1)
Quarter: 2013Q3

REPORT INFORMATION
  Report Type: Spontaneous
  Country: US (occurrence: None)
  Receive Date: 20130724
  Receipt Date: 20130724
  Transmission Date: 20140515
  Serious: Yes (Other)
  Sender: FDA-Public Use
  Company Number: PHEH2012US014771

PATIENT
  Age: 71 Year
  Sex: Female

DRUGS (6)
  1. GLEEVEC [Suspect]
     Indication: GASTROINTESTINAL STROMAL TUMOUR
     Route: 048
     Dates: start: 20120529, end: 20120627
  2. JANUVIA [Concomitant]
  3. PRAVASTATIN [Concomitant]
  4. LISINOPRIL [Concomitant]
  5. LANTUS [Concomitant]
  6. GLIMEPIRIDE [Concomitant]

REACTIONS (8)
  - Neuropathy peripheral [None]
  - Palpitations [None]
  - Pain in extremity [None]
  - Tachycardia [None]
  - Hypoaesthesia [None]
  - Paraesthesia [None]
  - Hypokinesia [None]
  - Balance disorder [None]
